FAERS Safety Report 5372635-3 (Version None)
Quarter: 2007Q2

REPORT INFORMATION
  Report Type: 
  Country: None (occurrence: None)
  Receive Date: 20070615
  Receipt Date: 20061107
  Transmission Date: 20071010
  Serious: Yes (Other)
  Sender: FDA-Public Use
  Company Number: 200610695US

PATIENT
  Age: 61 Year
  Sex: Male

DRUGS (10)
  1. LANTUS [Suspect]
     Indication: DIABETES MELLITUS NON-INSULIN-DEPENDENT
     Dosage: 15 U QD
     Dates: start: 20060114
  2. OPTICLIK [Suspect]
  3. METFORMIN HYDROCHLORIDE [Concomitant]
  4. AMARYL [Concomitant]
  5. AVANDIA [Concomitant]
  6. BLOOD PRESSURE MEDICATION [Concomitant]
  7. PERINDOPRIL ERBUMINE [Concomitant]
  8. DILTIAZEM (CARDIZEM /00489701/) [Concomitant]
  9. HYDROCHLOROTHIAZIDE [Concomitant]
  10. ADENOSINE (TRICOR /00090101/) [Concomitant]

REACTIONS (3)
  - BLOOD GLUCOSE INCREASED [None]
  - DRUG INEFFECTIVE [None]
  - HYPOGLYCAEMIA [None]
